FAERS Safety Report 13700454 (Version 1)
Quarter: 2017Q2

REPORT INFORMATION
  Report Type: Spontaneous
  Country: SE (occurrence: SE)
  Receive Date: 20170629
  Receipt Date: 20170629
  Transmission Date: 20170830
  Serious: Yes (Other)
  Sender: FDA-Public Use
  Company Number: SE-TEVA-779116ACC

PATIENT
  Age: 22 Year
  Sex: Female

DRUGS (8)
  1. TREO [Concomitant]
     Active Substance: ASPIRIN\CAFFEINE
  2. PANODIL [Concomitant]
     Active Substance: ACETAMINOPHEN
  3. PAMOL [Concomitant]
     Active Substance: ACETAMINOPHEN
  4. SUMATRIPTAN TEVA 100 MG FILMDRAGERAD TABLETT [Suspect]
     Active Substance: SUMATRIPTAN
     Indication: MIGRAINE
     Dosage: TABLET IF REQUIRED
     Dates: start: 2016
  5. IBUMETIN [Concomitant]
     Active Substance: IBUPROFEN
  6. IBUPROFEN. [Concomitant]
     Active Substance: IBUPROFEN
  7. ALVEDON [Concomitant]
     Active Substance: ACETAMINOPHEN
  8. IPREN [Concomitant]
     Active Substance: IBUPROFEN

REACTIONS (11)
  - Fatigue [Unknown]
  - Pharyngeal hypoaesthesia [Unknown]
  - Dizziness [Unknown]
  - Asthenia [Unknown]
  - Nausea [Unknown]
  - Vomiting [Unknown]
  - Diarrhoea [Unknown]
  - Gait disturbance [None]
  - Hypoaesthesia [Unknown]
  - Syncope [Unknown]
  - Dysstasia [None]

NARRATIVE: CASE EVENT DATE: 2016
